FAERS Safety Report 4471593-3 (Version None)
Quarter: 2004Q4

REPORT INFORMATION
  Report Type: 
  Country: None (occurrence: None)
  Receive Date: 20041012
  Receipt Date: 20040930
  Transmission Date: 20050328
  Serious: Yes (Other)
  Sender: FDA-Public Use
  Company Number: FR-GLAXOSMITHKLINE-B0347170A

PATIENT
  Sex: Female

DRUGS (3)
  1. TELZIR [Suspect]
     Indication: HIV INFECTION
     Route: 048
     Dates: start: 20040901
  2. ABACAVIR [Suspect]
     Indication: HIV INFECTION
     Route: 048
     Dates: start: 20040901
  3. VIDEX [Concomitant]
     Indication: HIV INFECTION
     Route: 048

REACTIONS (2)
  - CYTOLYTIC HEPATITIS [None]
  - RASH [None]
